FAERS Safety Report 8970078 (Version 1)
Quarter: 2012Q4

REPORT INFORMATION
  Report Type: 
  Country: US (occurrence: US)
  Receive Date: 20121218
  Receipt Date: 20121218
  Transmission Date: 20130627
  Serious: No
  Sender: FDA-Public Use
  Company Number: US-FOUGERA-2012FO001312

PATIENT
  Age: 63 Year
  Sex: Female
  Weight: 70.31 kg

DRUGS (5)
  1. IMIQUIMOD [Suspect]
     Indication: PRECANCEROUS SKIN LESION
     Route: 061
     Dates: start: 201111
  2. IMIQUIMOD [Suspect]
     Indication: PRECANCEROUS SKIN LESION
     Route: 061
     Dates: start: 201112
  3. IMIQUIMOD [Suspect]
     Indication: PRECANCEROUS SKIN LESION
     Route: 061
     Dates: start: 20120823, end: 20120827
  4. SUMATRIPTAN [Concomitant]
     Indication: HEADACHE
     Route: 048
     Dates: start: 2002
  5. SUMATRIPTAN [Concomitant]
     Indication: HEADACHE
     Route: 048
     Dates: start: 2002

REACTIONS (2)
  - Drug ineffective [Recovered/Resolved]
  - Application site erythema [Recovered/Resolved]
